FAERS Safety Report 11743402 (Version 2)
Quarter: 2016Q1

REPORT INFORMATION
  Report Type: Spontaneous
  Country: US (occurrence: US)
  Receive Date: 20151116
  Receipt Date: 20160203
  Transmission Date: 20160525
  Serious: No
  Sender: FDA-Public Use
  Company Number: US-UCBSA-2015009988

PATIENT
  Sex: Female
  Weight: 54.43 kg

DRUGS (8)
  1. VIMPAT [Suspect]
     Active Substance: LACOSAMIDE
     Dosage: UNK
     Route: 048
     Dates: start: 20150206, end: 2015
  2. VIMPAT [Suspect]
     Active Substance: LACOSAMIDE
     Dosage: DOSE TITRATED
     Dates: start: 20150322, end: 20150322
  3. KEPPRA [Suspect]
     Active Substance: LEVETIRACETAM
     Indication: SEIZURE
     Dosage: MANY YEARS AGO
  4. TRILEPTAL [Concomitant]
     Active Substance: OXCARBAZEPINE
     Dosage: DOSE INCREASED
     Dates: start: 201501
  5. VIMPAT [Suspect]
     Active Substance: LACOSAMIDE
     Dosage: DOSE DECREASED TO 50 MG
     Dates: start: 201503, end: 201503
  6. VITAMIN D3 [Concomitant]
     Active Substance: CHOLECALCIFEROL
     Indication: VITAMIN SUPPLEMENTATION
     Dosage: 400 MG
     Route: 048
  7. TRILEPTAL [Concomitant]
     Active Substance: OXCARBAZEPINE
     Indication: PRODUCT USED FOR UNKNOWN INDICATION
     Dosage: 130 MG ADN 225 MG IN THE EVENING
     Dates: start: 2005
  8. VIMPAT [Suspect]
     Active Substance: LACOSAMIDE
     Indication: PRODUCT USED FOR UNKNOWN INDICATION
     Dosage: UNK
     Route: 042
     Dates: start: 201502, end: 201502

REACTIONS (10)
  - Rash [Recovered/Resolved]
  - Oral discomfort [Not Recovered/Not Resolved]
  - Agitation [Not Recovered/Not Resolved]
  - Crying [Not Recovered/Not Resolved]
  - Amnesia [Not Recovered/Not Resolved]
  - Ear discomfort [Not Recovered/Not Resolved]
  - Haematochezia [Not Recovered/Not Resolved]
  - Vision blurred [Not Recovered/Not Resolved]
  - Nervousness [Not Recovered/Not Resolved]
  - Anger [Not Recovered/Not Resolved]

NARRATIVE: CASE EVENT DATE: 201503
